FAERS Safety Report 19495390 (Version 2)
Quarter: 2021Q3

REPORT INFORMATION
  Report Type: Spontaneous
  Country: MY (occurrence: MY)
  Receive Date: 20210706
  Receipt Date: 20210714
  Transmission Date: 20211014
  Serious: Yes (Other)
  Sender: FDA-Public Use
  Company Number: MY-AUROBINDO-AUR-APL-2021-028213

PATIENT
  Age: 46 Year
  Sex: Female

DRUGS (1)
  1. AUROTAZ?P POWDER FOR INJECTION 4.5G [Suspect]
     Active Substance: PIPERACILLIN SODIUM\TAZOBACTAM SODIUM
     Indication: BRONCHIECTASIS
     Dosage: 4.5 GRAM, FOUR TIMES/DAY
     Route: 042

REACTIONS (5)
  - Blood pressure decreased [Recovering/Resolving]
  - Pruritus [Recovering/Resolving]
  - Tachypnoea [Recovering/Resolving]
  - Swelling face [Recovering/Resolving]
  - Dyspnoea [Recovering/Resolving]
